FAERS Safety Report 24403026 (Version 3)
Quarter: 2024Q4

REPORT INFORMATION
  Report Type: Report from Study
  Country: JP (occurrence: JP)
  Receive Date: 20241007
  Receipt Date: 20241104
  Transmission Date: 20250114
  Serious: Yes (Other)
  Sender: SANOFI AVENTIS
  Company Number: JP-SAKK-2024SA283875AA

PATIENT
  Age: 79 Year
  Sex: Female
  Weight: 65.6 kg

DRUGS (14)
  1. ISATUXIMAB [Suspect]
     Active Substance: ISATUXIMAB
     Indication: Plasma cell myeloma refractory
     Dosage: 20 MG/KG, 1X
     Route: 041
     Dates: start: 20240401, end: 20240401
  2. ISATUXIMAB [Suspect]
     Active Substance: ISATUXIMAB
     Dosage: 20 MG/KG, 1X
     Route: 041
     Dates: start: 20230829, end: 20230829
  3. ISATUXIMAB [Suspect]
     Active Substance: ISATUXIMAB
     Dosage: 20 MG/KG, QW
     Route: 041
     Dates: start: 20230904, end: 20230911
  4. ISATUXIMAB [Suspect]
     Active Substance: ISATUXIMAB
     Dosage: 20 MG/KG, 1X
     Route: 041
     Dates: start: 20230925, end: 20230925
  5. ISATUXIMAB [Suspect]
     Active Substance: ISATUXIMAB
     Dosage: 20 MG/KG, QOW
     Route: 041
     Dates: start: 20231016, end: 20231225
  6. ISATUXIMAB [Suspect]
     Active Substance: ISATUXIMAB
     Dosage: 20 MG/KG, QOW
     Route: 041
     Dates: start: 20240115, end: 20240129
  7. ISATUXIMAB [Suspect]
     Active Substance: ISATUXIMAB
     Dosage: 20 MG/KG, QOW
     Route: 041
     Dates: start: 20240219, end: 20240304
  8. ISATUXIMAB [Suspect]
     Active Substance: ISATUXIMAB
     Dosage: 20 MG/KG, 1X
     Route: 041
     Dates: start: 20240319, end: 20240319
  9. SULFAMETHOXAZOLE\TRIMETHOPRIM [Concomitant]
     Active Substance: SULFAMETHOXAZOLE\TRIMETHOPRIM
     Indication: Infection prophylaxis
     Dosage: 500 MG/DAY
     Route: 065
     Dates: start: 20230829, end: 20240415
  10. ACYCLOVIR [Concomitant]
     Active Substance: ACYCLOVIR
     Indication: Infection prophylaxis
     Dosage: 200 MG/DAY
     Route: 065
     Dates: start: 20230829, end: 20240415
  11. TRAMADOL HYDROCHLORIDE [Concomitant]
     Active Substance: TRAMADOL HYDROCHLORIDE
     Indication: Plasma cell myeloma refractory
     Dosage: 100 MG/DAY
     Route: 065
     Dates: start: 20231030, end: 20240415
  12. METHYLPREDNISOLONE [Concomitant]
     Active Substance: METHYLPREDNISOLONE
     Indication: Prophylaxis
     Dosage: 125 MG/DAY
     Route: 065
     Dates: start: 20230925, end: 20240401
  13. DEXAMETHASONE [Concomitant]
     Active Substance: DEXAMETHASONE
     Indication: Plasma cell myeloma refractory
     Dosage: 12 MG/DAY
     Route: 065
     Dates: start: 20231016, end: 20240401
  14. DEXAMETHASONE [Concomitant]
     Active Substance: DEXAMETHASONE
     Indication: Prophylaxis
     Dosage: 40 MG/DAY
     Route: 065
     Dates: start: 20230829, end: 20230829

REACTIONS (1)
  - Cardiac failure [Recovering/Resolving]

NARRATIVE: CASE EVENT DATE: 20240401
